FAERS Safety Report 21040021 (Version 1)
Quarter: 2022Q3

REPORT INFORMATION
  Report Type: Spontaneous
  Country: GR (occurrence: GR)
  Receive Date: 20220704
  Receipt Date: 20220704
  Transmission Date: 20221026
  Serious: Yes (Death, Other)
  Sender: FDA-Public Use
  Company Number: GR-AMGEN-GRCSP2022110472

PATIENT

DRUGS (4)
  1. BEVACIZUMAB [Suspect]
     Active Substance: BEVACIZUMAB
     Indication: Hepatocellular carcinoma
     Dosage: UNK
     Route: 065
  2. BEVACIZUMAB [Suspect]
     Active Substance: BEVACIZUMAB
     Indication: Off label use
  3. ATEZOLIZUMAB [Suspect]
     Active Substance: ATEZOLIZUMAB
     Indication: Hepatocellular carcinoma
     Route: 065
  4. ATEZOLIZUMAB [Suspect]
     Active Substance: ATEZOLIZUMAB
     Indication: Hepatic cancer

REACTIONS (15)
  - Death [Fatal]
  - Haemoperitoneum [Unknown]
  - Autoimmune thyroiditis [Unknown]
  - Hepatocellular carcinoma [Unknown]
  - Pulmonary embolism [Unknown]
  - Drug effective for unapproved indication [Unknown]
  - Amylase abnormal [Unknown]
  - Colitis [Unknown]
  - Haematuria [Unknown]
  - Drug intolerance [Unknown]
  - Off label use [Unknown]
  - Therapy partial responder [Unknown]
  - Fatigue [Unknown]
  - Proteinuria [Unknown]
  - Tooth abscess [Unknown]
